FAERS Safety Report 5230701-7 (Version None)
Quarter: 2007Q1

REPORT INFORMATION
  Report Type: 
  Country: None (occurrence: None)
  Receive Date: 20070206
  Receipt Date: 20070131
  Transmission Date: 20070707
  Serious: Yes (Hospitalization)
  Sender: FDA-Public Use
  Company Number: GB-GLAXOSMITHKLINE-B0359626A

PATIENT
  Age: 34 Year
  Sex: Male

DRUGS (2)
  1. SEROXAT [Suspect]
     Route: 065
     Dates: start: 20000901
  2. PARACETAMOL [Suspect]
     Route: 065

REACTIONS (6)
  - AGGRESSION [None]
  - ALCOHOL POISONING [None]
  - DRUG WITHDRAWAL SYNDROME [None]
  - OVERDOSE [None]
  - SUICIDAL IDEATION [None]
  - SUICIDE ATTEMPT [None]
